FAERS Safety Report 6358171-6 (Version None)
Quarter: 2009Q3

REPORT INFORMATION
  Report Type: 
  Country: None (occurrence: None)
  Receive Date: 20090916
  Receipt Date: 20090914
  Transmission Date: 20100115
  Serious: Yes (Other)
  Sender: FDA-Public Use
  Company Number: ES-BRISTOL-MYERS SQUIBB COMPANY-14777056

PATIENT
  Age: 47 Year
  Sex: Female

DRUGS (9)
  1. ARIPIPRAZOLE [Suspect]
     Indication: BIPOLAR DISORDER
     Dosage: INTERUPTED AND REDUCED TO 5MG/D
  2. LITHIUM CARBONATE [Concomitant]
     Indication: BIPOLAR DISORDER
  3. LAMOTRIGINE [Concomitant]
     Indication: BIPOLAR DISORDER
  4. CLOZAPINE [Concomitant]
     Indication: BIPOLAR DISORDER
  5. VALPROIC ACID [Concomitant]
     Indication: BIPOLAR DISORDER
  6. CARBAMAZEPINE [Concomitant]
     Indication: BIPOLAR DISORDER
  7. NEUROLEPTICS [Concomitant]
     Indication: BIPOLAR DISORDER
  8. OLANZAPINE [Concomitant]
     Indication: BIPOLAR DISORDER
  9. QUETIAPINE [Concomitant]
     Indication: BIPOLAR DISORDER

REACTIONS (1)
  - PSYCHOTIC DISORDER [None]
